FAERS Safety Report 4553493-3 (Version None)
Quarter: 2005Q1

REPORT INFORMATION
  Report Type: 
  Country: None (occurrence: None)
  Receive Date: 20050113
  Receipt Date: 20050105
  Transmission Date: 20050727
  Serious: Yes (Death)
  Sender: FDA-Public Use
  Company Number: A0538879A

PATIENT
  Age: 12 Year
  Sex: Male

DRUGS (1)
  1. PAXIL CR [Suspect]
     Indication: DEPRESSION
     Dosage: 12.5 MG/PER DAY/ORAL
     Route: 048
     Dates: start: 20021125

REACTIONS (4)
  - COMPLETED SUICIDE [None]
  - FEELING COLD [None]
  - HAEMORRHAGE [None]
  - INJURY ASPHYXIATION [None]
